FAERS Safety Report 23798710 (Version 1)
Quarter: 2024Q2

REPORT INFORMATION
  Report Type: Spontaneous
  Country: US (occurrence: None)
  Receive Date: 20240427
  Receipt Date: 20240427
  Transmission Date: 20240715
  Serious: Yes (Hospitalization, Disabling, Other)
  Sender: FDA-Public Use
  Company Number: None

PATIENT
  Age: 55 Year
  Sex: Male
  Weight: 83.25 kg

DRUGS (1)
  1. CLONAZEPAM [Suspect]
     Active Substance: CLONAZEPAM
     Indication: Anxiety
     Dosage: OTHER QUANTITY : 1 TABLET(S);?FREQUENCY : TWICE A DAY;?
     Route: 048

REACTIONS (18)
  - Panic attack [None]
  - Fear [None]
  - Thyroid disorder [None]
  - Derealisation [None]
  - Depersonalisation/derealisation disorder [None]
  - Head discomfort [None]
  - Amnesia [None]
  - Thought blocking [None]
  - Tinnitus [None]
  - Erectile dysfunction [None]
  - Sensory loss [None]
  - Head discomfort [None]
  - Abdominal discomfort [None]
  - Oropharyngeal discomfort [None]
  - Discomfort [None]
  - Balance disorder [None]
  - Dental discomfort [None]
  - Sensory disturbance [None]

NARRATIVE: CASE EVENT DATE: 20170101
